FAERS Safety Report 5931008-2 (Version None)
Quarter: 2008Q4

REPORT INFORMATION
  Report Type: 
  Country: None (occurrence: None)
  Receive Date: 20081009
  Receipt Date: 20080702
  Transmission Date: 20090506
  Serious: Yes (Life-Threatening, Hospitalization)
  Sender: FDA-Public Use
  Company Number: LUP-0326

PATIENT
  Sex: Female

DRUGS (1)
  1. LISINOPRIL [Suspect]
     Indication: DRUG USE FOR UNKNOWN INDICATION
     Dates: end: 20080531

REACTIONS (1)
  - HYPERSENSITIVITY [None]
